FAERS Safety Report 5693567-7 (Version None)
Quarter: 2008Q2

REPORT INFORMATION
  Report Type: 
  Country: None (occurrence: None)
  Receive Date: 20080402
  Receipt Date: 20080402
  Transmission Date: 20081010
  Serious: Yes (Life-Threatening)
  Sender: FDA-Public Use
  Company Number: None

PATIENT
  Sex: Female
  Weight: 68.0396 kg

DRUGS (2)
  1. QVAR 40 [Suspect]
     Indication: ASTHMA
     Dosage: INHAL
     Route: 055
  2. PROVENTIL-HFA [Suspect]
     Indication: ASTHMA
     Dosage: INHAL
     Route: 055

REACTIONS (2)
  - PULMONARY FUNCTION TEST DECREASED [None]
  - THERAPEUTIC RESPONSE UNEXPECTED WITH DRUG SUBSTITUTION [None]
